FAERS Safety Report 13773148 (Version 2)
Quarter: 2017Q3

REPORT INFORMATION
  Report Type: Spontaneous
  Country: FR (occurrence: FR)
  Receive Date: 20170720
  Receipt Date: 20170815
  Transmission Date: 20171127
  Serious: Yes (Hospitalization)
  Sender: FDA-Public Use
  Company Number: FR-ASTRAZENECA-2017SE72460

PATIENT
  Age: 29832 Day
  Sex: Female

DRUGS (6)
  1. TOPALGIC (SUPROFEN) [Suspect]
     Active Substance: SUPROFEN
     Indication: PAIN
     Dosage: 100.0MG AS REQUIRED
     Route: 048
     Dates: start: 20170529, end: 20170614
  2. VANCOMYCIN [Suspect]
     Active Substance: VANCOMYCIN
     Indication: DEVICE RELATED INFECTION
     Dosage: NON AZ PRODUCT, 2 G, DAILY
     Route: 042
     Dates: start: 20170518, end: 20170622
  3. CLAFORAN [Suspect]
     Active Substance: CEFOTAXIME SODIUM
     Indication: DEVICE RELATED INFECTION
     Route: 042
     Dates: start: 20170526, end: 20170622
  4. AMLOR [Suspect]
     Active Substance: AMLODIPINE BESYLATE
     Indication: HYPERTENSION
     Route: 065
     Dates: start: 20170612, end: 20170620
  5. INEXIUM [Suspect]
     Active Substance: ESOMEPRAZOLE
     Indication: PEPTIC ULCER
     Dosage: 40 MG IN THE EVENING
     Route: 048
     Dates: start: 20170612, end: 20170620
  6. CONTRAMAL [Suspect]
     Active Substance: TRAMADOL HYDROCHLORIDE
     Indication: PAIN
     Dosage: 100.0MG AS REQUIRED
     Route: 042
     Dates: start: 20170523, end: 20170526

REACTIONS (7)
  - Cholestasis [None]
  - Renal tubular necrosis [None]
  - Hepatic enzyme increased [Recovering/Resolving]
  - Acute kidney injury [Recovering/Resolving]
  - Drug-induced liver injury [None]
  - Metabolic acidosis [None]
  - Toxicity to various agents [None]

NARRATIVE: CASE EVENT DATE: 20170610
